FAERS Safety Report 23957240 (Version 1)
Quarter: 2024Q2

REPORT INFORMATION
  Report Type: Report from Study
  Country: US (occurrence: US)
  Receive Date: 20240610
  Receipt Date: 20240610
  Transmission Date: 20240715
  Serious: Yes (Other)
  Sender: FDA-Public Use
  Company Number: US-JNJFOC-20240600644

PATIENT

DRUGS (2)
  1. SPRAVATO [Suspect]
     Active Substance: ESKETAMINE
     Indication: Depression
  2. SPRAVATO [Suspect]
     Active Substance: ESKETAMINE
     Dates: start: 20240530

REACTIONS (4)
  - Altered state of consciousness [Unknown]
  - Hangover [Recovered/Resolved]
  - Dizziness [Unknown]
  - Dissociation [Unknown]

NARRATIVE: CASE EVENT DATE: 20240530
